FAERS Safety Report 8446984-6 (Version None)
Quarter: 2012Q2

REPORT INFORMATION
  Report Type: 
  Country: None (occurrence: None)
  Receive Date: 20120612
  Receipt Date: 20120604
  Transmission Date: 20120825
  Serious: Yes (Hospitalization)
  Sender: FDA-Public Use
  Company Number: 2012133239

PATIENT
  Age: 32 Year
  Sex: Male

DRUGS (6)
  1. RAMIPRIL [Concomitant]
  2. CRESTOR (ROSUVASTATIN) FILM-COATED TABLET [Concomitant]
  3. TOPALGIC (TRAMADOL HYDROCHLORIDE) PROLONGED-RELEASE TABLET [Concomitant]
  4. PLAVIX [Concomitant]
  5. LEVEMIR [Concomitant]
  6. FRAGMIN [Suspect]
     Dosage: 2500 UI ANTI XA/0.2 ML SOLUTION IN PREFILLED SYRINGE, 1X/DAY, SUBCUTANEOUS
     Route: 058
     Dates: start: 20120116, end: 20120130

REACTIONS (1)
  - PLATELET COUNT INCREASED [None]
